FAERS Safety Report 5235047-9 (Version None)
Quarter: 2007Q1

REPORT INFORMATION
  Report Type: 
  Country: None (occurrence: None)
  Receive Date: 20070207
  Receipt Date: 20070123
  Transmission Date: 20070707
  Serious: Yes (Death, Hospitalization)
  Sender: FDA-Public Use
  Company Number: 2006BI013954

PATIENT
  Age: 49 Year
  Sex: Female

DRUGS (2)
  1. AVONEX [Suspect]
     Indication: MULTIPLE SCLEROSIS
     Dosage: 30 UG; IM
     Route: 030
     Dates: start: 19980601, end: 20060606
  2. AVONEX [Suspect]
     Indication: MULTIPLE SCLEROSIS
     Dosage: 30 UG;QW; IM
     Route: 030
     Dates: end: 20060606

REACTIONS (4)
  - CARDIAC FAILURE CONGESTIVE [None]
  - MALIGNANT MELANOMA STAGE IV [None]
  - MITRAL VALVE CALCIFICATION [None]
  - PERICARDIAL HAEMORRHAGE [None]
